FAERS Safety Report 21625962 (Version 3)
Quarter: 2024Q1

REPORT INFORMATION
  Report Type: Report from Study
  Country: US (occurrence: US)
  Receive Date: 20221122
  Receipt Date: 20240115
  Transmission Date: 20240410
  Serious: No
  Sender: FDA-Public Use
  Company Number: US-002147023-NVSC2022US261055

PATIENT
  Sex: Female

DRUGS (1)
  1. KESIMPTA [Suspect]
     Active Substance: OFATUMUMAB
     Indication: Multiple sclerosis
     Dosage: 20MG/0.4ML (INJECT 1 PEN (20 MG), AT WEEK0, WEEK 1 AND WEEK 2 AS DIRECTED)
     Route: 058

REACTIONS (1)
  - Maternal exposure timing unspecified [Unknown]
